FAERS Safety Report 7332506-X (Version None)
Quarter: 2011Q1

REPORT INFORMATION
  Report Type: 
  Country: None (occurrence: None)
  Receive Date: 20110304
  Receipt Date: 20110302
  Transmission Date: 20110831
  Serious: Yes (Other)
  Sender: FDA-Public Use
  Company Number: CA-ABBOTT-11P-028-0708575-00

PATIENT
  Age: 28 Year
  Sex: Male

DRUGS (2)
  1. OLANZAPINE [Concomitant]
     Indication: PRODUCT USED FOR UNKNOWN INDICATION
     Route: 048
  2. EPIVAL TABLETS 250MG [Suspect]
     Indication: PRODUCT USED FOR UNKNOWN INDICATION
     Route: 048

REACTIONS (9)
  - EYE PAIN [None]
  - NECK PAIN [None]
  - VISION BLURRED [None]
  - MYALGIA [None]
  - PHOTOPHOBIA [None]
  - NEURALGIA [None]
  - NON-CARDIAC CHEST PAIN [None]
  - DIPLOPIA [None]
  - BACK PAIN [None]
